FAERS Safety Report 13065393 (Version 1)
Quarter: 2016Q4

REPORT INFORMATION
  Report Type: Spontaneous
  Country: IN (occurrence: IN)
  Receive Date: 20161227
  Receipt Date: 20161227
  Transmission Date: 20170207
  Serious: Yes (Other)
  Sender: FDA-Public Use
  Company Number: IN-VALIDUS PHARMACEUTICALS LLC-IN-2016VAL003206

PATIENT
  Age: 62 Year
  Sex: Male

DRUGS (1)
  1. FUROSEMIDE. [Suspect]
     Active Substance: FUROSEMIDE
     Indication: HYPERTENSION
     Dosage: 40 MILLIGRAM(S);DAILY
     Route: 065

REACTIONS (5)
  - Sebaceous carcinoma [Unknown]
  - Skin plaque [Unknown]
  - Ulcer [Unknown]
  - Nodule [Unknown]
  - Erythema [Unknown]
